FAERS Safety Report 17025266 (Version 1)
Quarter: 2019Q4

REPORT INFORMATION
  Report Type: Spontaneous
  Country: JP (occurrence: JP)
  Receive Date: 20191113
  Receipt Date: 20191113
  Transmission Date: 20200122
  Serious: Yes (Hospitalization)
  Sender: FDA-Public Use
  Company Number: JP-PFIZER INC-2019475263

PATIENT
  Age: 75 Year
  Sex: Male

DRUGS (4)
  1. CARDENALIN [Suspect]
     Active Substance: DOXAZOSIN MESYLATE
     Indication: HYPERTENSION
     Dosage: 2 MG, 1X/DAY, BEFORE BED TIME
     Route: 048
  2. CARDENALIN [Suspect]
     Active Substance: DOXAZOSIN MESYLATE
     Dosage: 2 MG, 3X/DAY
     Route: 048
     Dates: start: 20190722
  3. TRICHLORMETHIAZIDE [Suspect]
     Active Substance: TRICHLORMETHIAZIDE
     Indication: HYPERTENSION
     Route: 048
  4. AMLODIPINE BESILATE [Suspect]
     Active Substance: AMLODIPINE BESYLATE
     Indication: HYPERTENSION
     Route: 048

REACTIONS (3)
  - Off label use [Unknown]
  - Blood pressure inadequately controlled [Unknown]
  - Blood glucose increased [Unknown]
